FAERS Safety Report 25341691 (Version 1)
Quarter: 2025Q2

REPORT INFORMATION
  Report Type: Spontaneous
  Country: US (occurrence: US)
  Receive Date: 20250521
  Receipt Date: 20250521
  Transmission Date: 20250717
  Serious: No
  Sender: VERTEX
  Company Number: US-VERTEX PHARMACEUTICALS-2025-007879

PATIENT
  Age: 71 Year
  Sex: Male

DRUGS (3)
  1. SUZETRIGINE [Suspect]
     Active Substance: SUZETRIGINE
     Indication: Neuropathy peripheral
     Dosage: 50 MG, BID (NO LOADING DOSE)
     Route: 048
     Dates: start: 20250430
  2. SUZETRIGINE [Suspect]
     Active Substance: SUZETRIGINE
     Indication: Hypoaesthesia
  3. SUZETRIGINE [Suspect]
     Active Substance: SUZETRIGINE
     Indication: Restless legs syndrome

REACTIONS (3)
  - Somnolence [Not Recovered/Not Resolved]
  - Product use issue [Unknown]
  - Off label use [Unknown]

NARRATIVE: CASE EVENT DATE: 20250430
